FAERS Safety Report 7385775-4 (Version None)
Quarter: 2011Q1

REPORT INFORMATION
  Report Type: 
  Country: None (occurrence: None)
  Receive Date: 20110301
  Receipt Date: 20101111
  Transmission Date: 20110831
  Serious: Yes (Hospitalization)
  Sender: FDA-Public Use
  Company Number: 2211100-US-JNJFOC-20100405090

PATIENT
  Age: 59 Year
  Sex: Male
  Weight: 77.1115 kg

DRUGS (5)
  1. IBUPROFEN [Suspect]
     Indication: NEUROPATHY PERIPHERAL
     Dosage: 1 DOSE(S), 2 IN 1 DAY
     Dates: start: 20030101
  2. AMITRIPTYLINE (AMITRIPTYLINE) [Suspect]
     Indication: NEUROPATHY PERIPHERAL
     Dosage: 10 MG, 1 IN 2 DAY
     Dates: start: 20030101
  3. LASIX [Concomitant]
  4. LISINOPRIL [Concomitant]
  5. NEURONTIN [Suspect]
     Indication: NEUROPATHY PERIPHERAL
     Dosage: 300 MG, 1 IN 1 DAY
     Dates: start: 20030101

REACTIONS (4)
  - WEIGHT INCREASED [None]
  - TREMOR [None]
  - HYPOAESTHESIA [None]
  - PARAESTHESIA [None]
